FAERS Safety Report 6267337-5 (Version None)
Quarter: 2009Q3

REPORT INFORMATION
  Report Type: 
  Country: None (occurrence: None)
  Receive Date: 20090714
  Receipt Date: 20090703
  Transmission Date: 20100115
  Serious: Yes (Other)
  Sender: FDA-Public Use
  Company Number: A0795287A

PATIENT
  Age: 75 Year
  Sex: Female

DRUGS (15)
  1. AVANDIA [Suspect]
     Dosage: 8MG PER DAY
     Route: 048
  2. CALCITE-D [Concomitant]
  3. FOLIC ACID [Concomitant]
  4. CORTISONE [Concomitant]
  5. PANTOPRAZOLE SODIUM [Concomitant]
  6. LIPITOR [Concomitant]
  7. UNSPECIFIED DRUGS [Concomitant]
  8. HUMIRA [Concomitant]
     Route: 058
  9. ALTACE [Concomitant]
  10. ACTONEL [Concomitant]
     Dosage: 35MG WEEKLY
  11. TYLENOL [Concomitant]
  12. DIABETA [Concomitant]
     Dosage: 5MG TWICE PER DAY
  13. SYNTHROID [Concomitant]
  14. FERROUS SULFATE TAB [Concomitant]
  15. METFORMIN HCL [Concomitant]
     Dosage: 850MG TWICE PER DAY

REACTIONS (2)
  - BACK CRUSHING [None]
  - LUMBAR VERTEBRAL FRACTURE [None]
